FAERS Safety Report 5489344-2 (Version None)
Quarter: 2007Q4

REPORT INFORMATION
  Report Type: 
  Country: None (occurrence: None)
  Receive Date: 20071005
  Receipt Date: 20070703
  Transmission Date: 20080405
  Serious: No
  Sender: FDA-Public Use
  Company Number: PHEH2007US08456

PATIENT
  Age: 76 Year
  Sex: Female
  Weight: 66.7 kg

DRUGS (1)
  1. TEKTURNA [Suspect]
     Indication: HYPERTENSION
     Dosage: 150 MG, ORAL
     Route: 048
     Dates: start: 20070511, end: 20070515

REACTIONS (1)
  - FEELING ABNORMAL [None]
